FAERS Safety Report 16756674 (Version 1)
Quarter: 2019Q3

REPORT INFORMATION
  Report Type: Spontaneous
  Country: GB (occurrence: GB)
  Receive Date: 20190829
  Receipt Date: 20190829
  Transmission Date: 20191005
  Serious: Yes (Other)
  Sender: FDA-Public Use
  Company Number: GB-TEVA-2019-GB-1097965

PATIENT
  Age: 38 Year
  Sex: Female
  Weight: 80 kg

DRUGS (1)
  1. BUPRENORPHINE. [Suspect]
     Active Substance: BUPRENORPHINE
     Indication: PAIN IN EXTREMITY
     Route: 062
     Dates: start: 20190103, end: 20190402

REACTIONS (2)
  - Skin weeping [Recovered/Resolved with Sequelae]
  - Blister infected [Recovered/Resolved with Sequelae]

NARRATIVE: CASE EVENT DATE: 20190407
